FAERS Safety Report 24167499 (Version 1)
Quarter: 2024Q3

REPORT INFORMATION
  Report Type: Spontaneous
  Country: US (occurrence: US)
  Receive Date: 20240802
  Receipt Date: 20240802
  Transmission Date: 20241017
  Serious: Yes (Other)
  Sender: CIVICA
  Company Number: US-CIVICARX-2024-US-040303

PATIENT
  Age: 38 Year
  Sex: Female

DRUGS (3)
  1. BUPIVACAINE HYDROCHLORIDE [Suspect]
     Active Substance: BUPIVACAINE HYDROCHLORIDE
     Indication: Epidural anaesthesia
     Route: 050
  2. FENTANYL [Suspect]
     Active Substance: FENTANYL\FENTANYL CITRATE
     Route: 050
  3. MORPHINE [Suspect]
     Active Substance: MORPHINE
     Route: 050

REACTIONS (2)
  - Anterior spinal artery syndrome [Unknown]
  - Spinal cord infarction [Unknown]
